FAERS Safety Report 21983874 (Version 12)
Quarter: 2025Q3

REPORT INFORMATION
  Report Type: Report from Study
  Country: CA (occurrence: CA)
  Receive Date: 20230213
  Receipt Date: 20250905
  Transmission Date: 20251021
  Serious: Yes (Other)
  Sender: TAKEDA
  Company Number: CA-TAKEDA-2023TUS014587

PATIENT
  Age: 1 Year
  Sex: Male

DRUGS (15)
  1. VEDOLIZUMAB [Suspect]
     Active Substance: VEDOLIZUMAB
     Indication: Colitis ulcerative
  2. VEDOLIZUMAB [Suspect]
     Active Substance: VEDOLIZUMAB
     Dosage: 300 MILLIGRAM, Q3WEEKS
     Dates: start: 20221103
  3. VEDOLIZUMAB [Suspect]
     Active Substance: VEDOLIZUMAB
     Dosage: 150 MILLIGRAM, Q4WEEKS
     Dates: start: 20230131
  4. VEDOLIZUMAB [Suspect]
     Active Substance: VEDOLIZUMAB
     Dosage: 300 MILLIGRAM, Q4WEEKS
     Dates: start: 20230706
  5. INFLIXIMAB [Concomitant]
     Active Substance: INFLIXIMAB
  6. PREDNISONE [Concomitant]
     Active Substance: PREDNISONE
  7. SULFASALAZINE [Concomitant]
     Active Substance: SULFASALAZINE
  8. SULFASALAZINE [Concomitant]
     Active Substance: SULFASALAZINE
     Dosage: 4.5 MILLILITER, BID
  9. MESALAMINE [Concomitant]
     Active Substance: MESALAMINE
  10. STELARA [Concomitant]
     Active Substance: USTEKINUMAB
  11. VANCOMYCIN [Concomitant]
     Active Substance: VANCOMYCIN
     Indication: Clostridium difficile infection
  12. CALCIUM CARBONATE [Concomitant]
     Active Substance: CALCIUM CARBONATE
     Dosage: 3.75 MILLILITER, BID
  13. LANSOPRAZOLE [Concomitant]
     Active Substance: LANSOPRAZOLE
     Dosage: 7.5 MILLIGRAM, QD
  14. LANSOPRAZOLE [Concomitant]
     Active Substance: LANSOPRAZOLE
  15. VITAMIN D3 [Concomitant]
     Active Substance: CHOLECALCIFEROL
     Dosage: UNK UNK, QD

REACTIONS (10)
  - Colitis ulcerative [Unknown]
  - Clostridium difficile infection [Unknown]
  - Haematochezia [Unknown]
  - COVID-19 [Unknown]
  - Off label use [Unknown]
  - Drug level decreased [Unknown]
  - Diarrhoea [Unknown]
  - Microcytic anaemia [Unknown]
  - Gastritis [Unknown]
  - Oesophagitis [Unknown]

NARRATIVE: CASE EVENT DATE: 20220923
